FAERS Safety Report 6447802-8 (Version None)
Quarter: 2009Q4

REPORT INFORMATION
  Report Type: 
  Country: None (occurrence: None)
  Receive Date: 20091120
  Receipt Date: 20090729
  Transmission Date: 20100525
  Serious: No
  Sender: FDA-Public Use
  Company Number: A0799288A

PATIENT
  Age: 53 Year
  Sex: Male

DRUGS (2)
  1. VERAMYST [Suspect]
     Dosage: 1SPR PER DAY
     Route: 045
     Dates: start: 20090501
  2. OTHER MEDICATIONS [Concomitant]

REACTIONS (3)
  - COUGH [None]
  - DRY MOUTH [None]
  - HYPERTONIC BLADDER [None]
